FAERS Safety Report 25491495 (Version 2)
Quarter: 2025Q3

REPORT INFORMATION
  Report Type: Spontaneous
  Country: JP (occurrence: JP)
  Receive Date: 20250629
  Receipt Date: 20250708
  Transmission Date: 20251021
  Serious: Yes (Other)
  Sender: MERCK SHARP & DOHME LLC
  Company Number: JP-009507513-2298468

PATIENT
  Age: 65 Year
  Sex: Female

DRUGS (4)
  1. KEYTRUDA [Suspect]
     Active Substance: PEMBROLIZUMAB
     Indication: Renal cancer recurrent
     Route: 065
     Dates: start: 20250107, end: 2025
  2. KEYTRUDA [Suspect]
     Active Substance: PEMBROLIZUMAB
     Indication: Renal cancer recurrent
     Route: 065
     Dates: start: 20231212
  3. LENVIMA [Suspect]
     Active Substance: LENVATINIB
     Indication: Renal cancer recurrent
     Route: 065
     Dates: start: 20250107, end: 2025
  4. LENVIMA [Suspect]
     Active Substance: LENVATINIB
     Indication: Renal cancer recurrent
     Route: 065
     Dates: start: 20250225, end: 2025

REACTIONS (5)
  - Immune-mediated mucositis [Recovering/Resolving]
  - Rash erythematous [Recovering/Resolving]
  - Immune-mediated mucositis [Unknown]
  - Thyroiditis [Unknown]
  - Vertebral column mass [Unknown]

NARRATIVE: CASE EVENT DATE: 20240124
